FAERS Safety Report 21578793 (Version 1)
Quarter: 2022Q4

REPORT INFORMATION
  Report Type: Other
  Country: US (occurrence: None)
  Receive Date: 20221110
  Receipt Date: 20221110
  Transmission Date: 20230112
  Serious: Yes (Hospitalization, Other)
  Sender: FDA-Public Use
  Company Number: US-Merck Healthcare KGaA-9363640

PATIENT
  Age: 59 Year
  Sex: Male

DRUGS (1)
  1. METFORMIN HYDROCHLORIDE [Suspect]
     Active Substance: METFORMIN HYDROCHLORIDE
     Indication: Type 2 diabetes mellitus

REACTIONS (4)
  - Parkinsonism [Recovering/Resolving]
  - Lactic acidosis [Not Recovered/Not Resolved]
  - Hypertensive crisis [Unknown]
  - Contraindicated product administered [Unknown]
